FAERS Safety Report 8392076-4 (Version None)
Quarter: 2012Q2

REPORT INFORMATION
  Report Type: 
  Country: None (occurrence: None)
  Receive Date: 20120525
  Receipt Date: 20120525
  Transmission Date: 20120825
  Serious: Yes (Hospitalization)
  Sender: FDA-Public Use
  Company Number: None

PATIENT
  Age: 61 Year
  Sex: Male
  Weight: 110 kg

DRUGS (2)
  1. INCIVEK [Suspect]
     Dosage: INCIVEK 375 2 TID PO
     Route: 048
  2. PEGASYS [Suspect]
     Dosage: PEGASYS 180 MCG 1 WEEKLY SQ
     Route: 058

REACTIONS (1)
  - LOSS OF CONSCIOUSNESS [None]
